FAERS Safety Report 10153050 (Version 1)
Quarter: 2014Q2

REPORT INFORMATION
  Report Type: Spontaneous
  Country: US (occurrence: US)
  Receive Date: 20140505
  Receipt Date: 20140505
  Transmission Date: 20141212
  Serious: No
  Sender: FDA-Public Use
  Company Number: US-JNJFOC-20140417147

PATIENT
  Sex: Female
  Weight: 74.84 kg

DRUGS (6)
  1. DURAGESIC [Suspect]
     Indication: PAIN
     Route: 062
  2. FEMARA [Concomitant]
     Indication: BREAST CANCER
     Route: 065
  3. CYMBALTA [Concomitant]
     Indication: PAIN
     Route: 065
  4. NEXIUM [Concomitant]
     Indication: GASTRIC DISORDER
     Route: 065
  5. BABY ASPIRIN [Concomitant]
     Indication: CARDIAC DISORDER
     Route: 048
  6. VALTREX [Concomitant]
     Dosage: AS NEEDED
     Route: 065

REACTIONS (3)
  - Drug dose omission [Not Recovered/Not Resolved]
  - Withdrawal syndrome [Not Recovered/Not Resolved]
  - Application site rash [Not Recovered/Not Resolved]
